FAERS Safety Report 25454141 (Version 2)
Quarter: 2025Q4

REPORT INFORMATION
  Report Type: Spontaneous
  Country: CA (occurrence: CA)
  Receive Date: 20250619
  Receipt Date: 20251014
  Transmission Date: 20260117
  Serious: Yes (Other)
  Sender: JOHNSON AND JOHNSON
  Company Number: CA-JNJFOC-20250615928

PATIENT
  Age: 57 Year
  Sex: Female

DRUGS (2)
  1. STELARA [Suspect]
     Active Substance: USTEKINUMAB
     Indication: Colitis ulcerative
     Route: 058
  2. STELARA [Suspect]
     Active Substance: USTEKINUMAB
     Indication: Colitis ulcerative
     Route: 040

REACTIONS (8)
  - Haematochezia [Unknown]
  - Faecal calprotectin increased [Unknown]
  - Flatulence [Unknown]
  - Mucous stools [Unknown]
  - Abdominal pain [Unknown]
  - Symptom recurrence [Unknown]
  - Therapeutic response delayed [Unknown]
  - Off label use [Unknown]
